FAERS Safety Report 24059051 (Version 1)
Quarter: 2024Q3

REPORT INFORMATION
  Report Type: Spontaneous
  Country: DE (occurrence: DE)
  Receive Date: 20240708
  Receipt Date: 20240708
  Transmission Date: 20241017
  Serious: Yes (Other)
  Sender: GILEAD
  Company Number: DE-GILEAD-2024-0679637

PATIENT
  Sex: Male

DRUGS (1)
  1. EPCLUSA [Suspect]
     Active Substance: SOFOSBUVIR\VELPATASVIR
     Indication: Chronic hepatitis C
     Dosage: UNK
     Route: 065

REACTIONS (3)
  - Hepatitis C [Unknown]
  - Mental disorder [Unknown]
  - Product use complaint [Not Recovered/Not Resolved]
